FAERS Safety Report 4541799-3 (Version None)
Quarter: 2004Q4

REPORT INFORMATION
  Report Type: 
  Country: None (occurrence: None)
  Receive Date: 20041227
  Receipt Date: 20041213
  Transmission Date: 20050328
  Serious: Yes (Death)
  Sender: FDA-Public Use
  Company Number: RENA-11226

PATIENT
  Age: 65 Year
  Sex: Female

DRUGS (1)
  1. RENAGEL [Suspect]
     Indication: HYPERPHOSPHATAEMIA
     Dates: end: 20041203

REACTIONS (2)
  - HEART VALVE REPLACEMENT [None]
  - POST PROCEDURAL COMPLICATION [None]
